FAERS Safety Report 6852010-2 (Version None)
Quarter: 2010Q3

REPORT INFORMATION
  Report Type: 
  Country: None (occurrence: None)
  Receive Date: 20100717
  Receipt Date: 20071102
  Transmission Date: 20110219
  Serious: No
  Sender: FDA-Public Use
  Company Number: US-PFIZER INC-2007094146

PATIENT
  Sex: Female
  Weight: 68 kg

DRUGS (16)
  1. CHANTIX [Suspect]
     Indication: SMOKING CESSATION THERAPY
     Route: 048
     Dates: start: 20071031
  2. HYDROCODONE [Concomitant]
  3. FENTANYL [Concomitant]
  4. SOMA [Concomitant]
  5. FEXOFENADINE [Concomitant]
  6. SUCRALFATE [Concomitant]
  7. PLAVIX [Concomitant]
  8. PROMETHAZINE [Concomitant]
  9. LUNESTA [Concomitant]
  10. PALIPERIDONE [Concomitant]
  11. BENZTROPINE MESYLATE [Concomitant]
  12. PROTONIX [Concomitant]
  13. KLONOPIN [Concomitant]
  14. FELODIPINE [Concomitant]
  15. CITALOPRAM HYDROBROMIDE [Concomitant]
  16. MIRTAZAPINE [Concomitant]

REACTIONS (2)
  - ABNORMAL DREAMS [None]
  - MIDDLE INSOMNIA [None]
